FAERS Safety Report 5068323-3 (Version None)
Quarter: 2006Q3

REPORT INFORMATION
  Report Type: 
  Country: None (occurrence: None)
  Receive Date: 20060802
  Receipt Date: 20050803
  Transmission Date: 20061208
  Serious: No
  Sender: FDA-Public Use
  Company Number: US-BRISTOL-MYERS SQUIBB COMPANY-13061585

PATIENT
  Age: 82 Year
  Sex: Female
  Weight: 73 kg

DRUGS (2)
  1. COUMADIN [Suspect]
     Indication: CEREBROVASCULAR ACCIDENT PROPHYLAXIS
  2. COUMADIN [Suspect]
     Indication: CARDIAC PACEMAKER INSERTION

REACTIONS (4)
  - CONTUSION [None]
  - INTERNATIONAL NORMALISED RATIO FLUCTUATION [None]
  - LACRIMATION INCREASED [None]
  - PRURITUS GENERALISED [None]
